FAERS Safety Report 14157045 (Version 1)
Quarter: 2017Q4

REPORT INFORMATION
  Report Type: Spontaneous
  Country: US (occurrence: None)
  Receive Date: 20171103
  Receipt Date: 20171103
  Transmission Date: 20180321
  Serious: No
  Sender: FDA-Public Use
  Company Number: None

PATIENT
  Age: 45 Year
  Sex: Male

DRUGS (1)
  1. COPAXONE [Suspect]
     Active Substance: GLATIRAMER ACETATE
     Indication: MULTIPLE SCLEROSIS
     Dosage: 40MG THREE TIMES PER WEEK
     Route: 058

REACTIONS (6)
  - Injection site ulcer [None]
  - Injection site mass [None]
  - Injection site pain [None]
  - Injection site vesicles [None]
  - Injection site bruising [None]
  - Injection site scar [None]
